FAERS Safety Report 4336405-7 (Version None)
Quarter: 2004Q2

REPORT INFORMATION
  Report Type: 
  Country: None (occurrence: None)
  Receive Date: 20040407
  Receipt Date: 20040326
  Transmission Date: 20050107
  Serious: Yes (Hospitalization)
  Sender: FDA-Public Use
  Company Number: US-JNJFOC-20031203702

PATIENT
  Age: 58 Year
  Sex: Female
  Weight: 61.6892 kg

DRUGS (4)
  1. REMICADE [Suspect]
     Indication: CROHN'S DISEASE
     Dosage: SEE IMAGE
     Route: 042
     Dates: start: 20030625
  2. REMICADE [Suspect]
     Indication: CROHN'S DISEASE
     Dosage: SEE IMAGE
     Route: 042
     Dates: start: 20030701
  3. PENTASA [Concomitant]
  4. FLAGYL [Concomitant]

REACTIONS (14)
  - BACTERAEMIA [None]
  - BAND NEUTROPHIL COUNT INCREASED [None]
  - BLOOD PRESSURE DECREASED [None]
  - CHEST PAIN [None]
  - CHILLS [None]
  - DIZZINESS [None]
  - ENTEROCUTANEOUS FISTULA [None]
  - ENTEROVESICAL FISTULA [None]
  - HEART RATE INCREASED [None]
  - INFUSION RELATED REACTION [None]
  - LEUKOPENIA [None]
  - PALLOR [None]
  - SEPSIS [None]
  - URINARY TRACT INFECTION [None]
